FAERS Safety Report 18289211 (Version 4)
Quarter: 2020Q4

REPORT INFORMATION
  Report Type: Spontaneous
  Country: US (occurrence: US)
  Receive Date: 20200921
  Receipt Date: 20201211
  Transmission Date: 20210113
  Serious: No
  Sender: FDA-Public Use
  Company Number: US-PFIZER INC-2020361645

PATIENT
  Age: 78 Year
  Sex: Female
  Weight: 58.97 kg

DRUGS (3)
  1. RUXIENCE [Suspect]
     Active Substance: RITUXIMAB-PVVR
     Dosage: 875 MG (ON C1D1 FOR 182 DAYS X 5 CYCLES)
     Dates: start: 20201005
  2. RUXIENCE [Suspect]
     Active Substance: RITUXIMAB-PVVR
     Dosage: 500 MG (INFUSE 500MG IV EVERY 182 DAYS)
     Route: 042
  3. RUXIENCE [Suspect]
     Active Substance: RITUXIMAB-PVVR
     Indication: VASCULITIS
     Dosage: UNK
     Dates: start: 20200802

REACTIONS (2)
  - Weight decreased [Unknown]
  - Product dose omission issue [Unknown]
